FAERS Safety Report 4306541-X (Version None)
Quarter: 2004Q1

REPORT INFORMATION
  Report Type: 
  Country: None (occurrence: None)
  Receive Date: 20040225
  Receipt Date: 20030911
  Transmission Date: 20041129
  Serious: No
  Sender: FDA-Public Use
  Company Number: US-BRISTOL-MYERS SQUIBB COMPANY-12388419

PATIENT
  Age: 30 Year
  Sex: Female
  Weight: 109 kg

DRUGS (1)
  1. EXCEDRIN (MIGRAINE) [Suspect]
     Indication: HEADACHE
     Dosage: THERAPY DATE REPORTED AS 10-SEP-2003 AND 11-SEP-2003
     Route: 048
     Dates: start: 20030901

REACTIONS (1)
  - DRUG INEFFECTIVE [None]
